FAERS Safety Report 8154545-1 (Version None)
Quarter: 2012Q1

REPORT INFORMATION
  Report Type: 
  Country: None (occurrence: None)
  Receive Date: 20120215
  Receipt Date: 20120209
  Transmission Date: 20120608
  Serious: Yes (Other)
  Sender: FDA-Public Use
  Company Number: 2012SP007755

PATIENT
  Sex: Female
  Weight: 80.2867 kg

DRUGS (2)
  1. RIBAVIRIN [Suspect]
     Indication: HEPATITIS C
  2. PEG-INTRON [Suspect]
     Indication: HEPATITIS C
     Dosage: QW
     Dates: start: 20060101

REACTIONS (4)
  - WEIGHT DECREASED [None]
  - INFLUENZA LIKE ILLNESS [None]
  - DIVERTICULITIS [None]
  - NAUSEA [None]
